FAERS Safety Report 25493056 (Version 1)
Quarter: 2025Q2

REPORT INFORMATION
  Report Type: Spontaneous
  Country: CN (occurrence: CN)
  Receive Date: 20250630
  Receipt Date: 20250630
  Transmission Date: 20250716
  Serious: Yes (Life-Threatening, Other)
  Sender: DAIICHI
  Company Number: CN-DSJP-DS-2025-150196-CN

PATIENT
  Age: 58 Year
  Sex: Male
  Weight: 68 kg

DRUGS (7)
  1. ENHERTU [Suspect]
     Active Substance: FAM-TRASTUZUMAB DERUXTECAN-NXKI
     Indication: Lung neoplasm malignant
     Dosage: 300 MG, ONCE EVERY 3 WK
     Route: 041
     Dates: start: 20250613, end: 20250623
  2. MANNITOL [Concomitant]
     Active Substance: MANNITOL
     Indication: Intracranial pressure increased
     Route: 065
  3. MANNITOL [Concomitant]
     Active Substance: MANNITOL
     Indication: Electrolyte imbalance
  4. FRUCTOSE\GLYCERIN [Concomitant]
     Active Substance: FRUCTOSE\GLYCERIN
     Indication: Intracranial pressure increased
     Route: 065
  5. FRUCTOSE\GLYCERIN [Concomitant]
     Active Substance: FRUCTOSE\GLYCERIN
     Indication: Electrolyte imbalance
  6. UNSPECIFIED INGREDIENT [Concomitant]
     Active Substance: UNSPECIFIED INGREDIENT
     Indication: Intracranial pressure increased
     Route: 065
  7. UNSPECIFIED INGREDIENT [Concomitant]
     Active Substance: UNSPECIFIED INGREDIENT
     Indication: Electrolyte imbalance

REACTIONS (2)
  - Prothrombin time prolonged [Unknown]
  - White blood cell count decreased [Unknown]

NARRATIVE: CASE EVENT DATE: 20250623
